FAERS Safety Report 4689134-4 (Version None)
Quarter: 2005Q2

REPORT INFORMATION
  Report Type: 
  Country: None (occurrence: None)
  Receive Date: 20050613
  Receipt Date: 20050530
  Transmission Date: 20051028
  Serious: Yes (Other)
  Sender: FDA-Public Use
  Company Number: 2005AP03168

PATIENT
  Age: 32 Year
  Sex: Female

DRUGS (1)
  1. NAROPIN [Suspect]

REACTIONS (3)
  - EMBOLISM [None]
  - EMBOLISM VENOUS [None]
  - HYPOAESTHESIA [None]
